FAERS Safety Report 9922328 (Version 1)
Quarter: 2014Q1

REPORT INFORMATION
  Report Type: Spontaneous
  Country: US (occurrence: US)
  Receive Date: 20140225
  Receipt Date: 20140225
  Transmission Date: 20141002
  Serious: No
  Sender: FDA-Public Use
  Company Number: US-009507513-1402USA011140

PATIENT
  Age: 21 Year
  Sex: Female
  Weight: 62.59 kg

DRUGS (2)
  1. IMPLANON [Suspect]
     Dosage: 1 ROD/ 3 YEARS, IN RIGHT ARM
     Route: 059
     Dates: start: 20110525
  2. LEVOTHYROXINE SODIUM [Concomitant]
     Indication: THYROID DISORDER
     Dosage: UNK

REACTIONS (1)
  - Menorrhagia [Unknown]
